FAERS Safety Report 24393596 (Version 2)
Quarter: 2025Q3

REPORT INFORMATION
  Report Type: Report from Study
  Country: CA (occurrence: CA)
  Receive Date: 20241003
  Receipt Date: 20250708
  Transmission Date: 20251021
  Serious: Yes (Other)
  Sender: SANDOZ
  Company Number: CA-002147023-NVSC2023CA122065

PATIENT
  Age: 25 Year
  Sex: Male

DRUGS (1)
  1. HYRIMOZ [Suspect]
     Active Substance: ADALIMUMAB-ADAZ
     Indication: Ankylosing spondylitis
     Dosage: 40 MG, Q2W (40 MG S/C;EVERY TWO WEEKS)
     Route: 058
     Dates: start: 20230524

REACTIONS (6)
  - Seizure [Unknown]
  - Rhinorrhoea [Unknown]
  - Back pain [Unknown]
  - Joint swelling [Unknown]
  - Arthralgia [Unknown]
  - Product dose omission issue [Unknown]

NARRATIVE: CASE EVENT DATE: 20230525
